FAERS Safety Report 15111279 (Version 2)
Quarter: 2018Q4

REPORT INFORMATION
  Report Type: Spontaneous
  Country: US (occurrence: US)
  Receive Date: 20180705
  Receipt Date: 20181129
  Transmission Date: 20190204
  Serious: No
  Sender: FDA-Public Use
  Company Number: US-SA-2018SA179135

PATIENT
  Age: 35 Year
  Sex: Male
  Weight: 125 kg

DRUGS (2)
  1. LUMIZYME [Suspect]
     Active Substance: ALGLUCOSIDASE ALFA
     Indication: GLYCOGEN STORAGE DISEASE TYPE II
     Dosage: UNK UNK, QOW; SINGLE DOSE
     Route: 041
     Dates: start: 201404
  2. LUMIZYME [Suspect]
     Active Substance: ALGLUCOSIDASE ALFA
     Dosage: UNK; DOUBLE DOSE
     Route: 041

REACTIONS (3)
  - Fatigue [Unknown]
  - Disease progression [Not Recovered/Not Resolved]
  - Respiratory disorder [Not Recovered/Not Resolved]
